FAERS Safety Report 18296781 (Version 3)
Quarter: 2020Q4

REPORT INFORMATION
  Report Type: Spontaneous
  Country: FR (occurrence: FR)
  Receive Date: 20200922
  Receipt Date: 20201028
  Transmission Date: 20210113
  Serious: Yes (Death, Other)
  Sender: FDA-Public Use
  Company Number: FR-ABBVIE-20K-056-3577267-00

PATIENT

DRUGS (1)
  1. VENETOCLAX. [Suspect]
     Active Substance: VENETOCLAX
     Indication: PRIMARY AMYLOIDOSIS
     Route: 048

REACTIONS (6)
  - Off label use [Unknown]
  - Disease progression [Unknown]
  - Influenza [Fatal]
  - Therapeutic product effect incomplete [Unknown]
  - Drug intolerance [Unknown]
  - Diarrhoea [Unknown]
